FAERS Safety Report 15203694 (Version 1)
Quarter: 2018Q3

REPORT INFORMATION
  Report Type: Spontaneous
  Country: DE (occurrence: DE)
  Receive Date: 20180726
  Receipt Date: 20180726
  Transmission Date: 20181010
  Serious: Yes (Hospitalization)
  Sender: FDA-Public Use
  Company Number: DE-SA-2018SA196044

PATIENT
  Age: 68 Year
  Sex: Female

DRUGS (8)
  1. LEFLUNOMIDE. [Suspect]
     Active Substance: LEFLUNOMIDE
     Dosage: 20 MG
  2. MABTHERA [Suspect]
     Active Substance: RITUXIMAB
     Indication: RHEUMATOID ARTHRITIS
     Dosage: 1000 MG
     Dates: start: 20080626, end: 20080710
  3. ORENCIA [Concomitant]
     Active Substance: ABATACEPT
     Dosage: 750 MG
     Dates: start: 201012, end: 201205
  4. ENBREL [Concomitant]
     Active Substance: ETANERCEPT
     Dosage: 50 MG
     Dates: start: 200903, end: 200909
  5. KINERET [Concomitant]
     Active Substance: ANAKINRA
     Dosage: 100 MG
     Dates: start: 201311, end: 201401
  6. KINERET [Concomitant]
     Active Substance: ANAKINRA
     Dosage: 100 UNK
     Dates: start: 201205, end: 201301
  7. HUMIRA [Concomitant]
     Active Substance: ADALIMUMAB
     Dosage: 40 MG
     Dates: start: 200909
  8. SIMPONI [Concomitant]
     Active Substance: GOLIMUMAB
     Dosage: 50 MG
     Dates: start: 201304, end: 201306

REACTIONS (3)
  - Diarrhoea [Unknown]
  - Arthritis [Unknown]
  - Parotitis [Unknown]
